FAERS Safety Report 17077313 (Version 9)
Quarter: 2020Q2

REPORT INFORMATION
  Report Type: Spontaneous
  Country: US (occurrence: US)
  Receive Date: 20191126
  Receipt Date: 20200616
  Transmission Date: 20200713
  Serious: Yes (Hospitalization, Other)
  Sender: FDA-Public Use
  Company Number: US-AMGEN INC.-USASP2019192407

PATIENT
  Age: 66 Year
  Sex: Female
  Weight: 114.74 kg

DRUGS (2)
  1. AIMOVIG [Suspect]
     Active Substance: ERENUMAB-AOOE
     Indication: MIGRAINE
     Dosage: 140 MILLIGRAM, QMO
     Route: 058
     Dates: start: 20181116
  2. ELIQUIS [Concomitant]
     Active Substance: APIXABAN
     Dosage: UNK UNK, QD

REACTIONS (6)
  - Injection site pain [Unknown]
  - Pneumonia [Unknown]
  - Device use error [Unknown]
  - Pulmonary embolism [Unknown]
  - Deep vein thrombosis [Unknown]
  - Headache [Not Recovered/Not Resolved]

NARRATIVE: CASE EVENT DATE: 20181116
